FAERS Safety Report 9598572 (Version 1)
Quarter: 2013Q4

REPORT INFORMATION
  Report Type: Spontaneous
  Country: US (occurrence: US)
  Receive Date: 20131004
  Receipt Date: 20131004
  Transmission Date: 20140711
  Serious: No
  Sender: FDA-Public Use
  Company Number: US-AMGEN-USASP2013024722

PATIENT
  Age: 67 Year
  Sex: Female
  Weight: 67.12 kg

DRUGS (10)
  1. ENBREL [Suspect]
     Indication: PRODUCT USED FOR UNKNOWN INDICATION
     Dosage: 50 MG, 2 TIMES/WK AT LEAST 72-96 HOURS APART
     Route: 058
  2. COZAAR [Concomitant]
     Dosage: 100 MG, UNK
  3. LIPITOR [Concomitant]
     Dosage: 20 MG, UNK
  4. GARLIC                             /01570501/ [Concomitant]
     Dosage: 1500  UNK, UNK
  5. ASPIRIN [Concomitant]
     Dosage: 81 MG, EC UNK
  6. MULTIVITAMINS, PLAIN [Concomitant]
     Dosage: UNK
  7. FISH OIL [Concomitant]
     Dosage: UNK
  8. CALCIUM 500+D [Concomitant]
     Dosage: UNK
  9. B 12 [Concomitant]
     Dosage: 01 MG, UNK
  10. REPLESTA [Concomitant]
     Dosage: WAF 5000O UNIT

REACTIONS (2)
  - Psoriasis [Unknown]
  - Sinusitis [Unknown]
